FAERS Safety Report 12395759 (Version 1)
Quarter: 2016Q2

REPORT INFORMATION
  Report Type: Spontaneous
  Country: US (occurrence: US)
  Receive Date: 20160523
  Receipt Date: 20160523
  Transmission Date: 20160815
  Serious: No
  Sender: FDA-Public Use
  Company Number: US-BANPHARM-20153924

PATIENT
  Age: 81 Year
  Sex: Female
  Weight: 45.36 kg

DRUGS (2)
  1. IBUPROFEN CAPSULES 200 MG [Suspect]
     Active Substance: IBUPROFEN
     Indication: BACK PAIN
     Dosage: 1-3 DF, QD,
     Route: 048
     Dates: start: 20150422, end: 20150513
  2. TRAMADOL. [Concomitant]
     Active Substance: TRAMADOL
     Dosage: 50 MG,

REACTIONS (1)
  - Rash [Unknown]
